FAERS Safety Report 6856673-7 (Version None)
Quarter: 2010Q3

REPORT INFORMATION
  Report Type: 
  Country: None (occurrence: None)
  Receive Date: 20100719
  Receipt Date: 20100713
  Transmission Date: 20110219
  Serious: Yes (Other)
  Sender: FDA-Public Use
  Company Number: CHPA2010US11554

PATIENT
  Age: 84 Year
  Sex: Female
  Weight: 54.422 kg

DRUGS (1)
  1. TRANSDERM SCOP [Suspect]
     Indication: ABDOMINAL DISCOMFORT
     Dosage: 1.5 MG, Q72H
     Route: 062

REACTIONS (3)
  - OESOPHAGEAL CARCINOMA [None]
  - OFF LABEL USE [None]
  - WRONG TECHNIQUE IN DRUG USAGE PROCESS [None]
